FAERS Safety Report 5379607-3 (Version None)
Quarter: 2007Q2

REPORT INFORMATION
  Report Type: 
  Country: None (occurrence: None)
  Receive Date: 20070530
  Receipt Date: 20070306
  Transmission Date: 20071010
  Serious: No
  Sender: FDA-Public Use
  Company Number: 2007PV031223

PATIENT
  Age: 63 Year
  Sex: Male

DRUGS (5)
  1. BYETTA [Suspect]
     Indication: DIABETES MELLITUS NON-INSULIN-DEPENDENT
     Dosage: 2.5 MCG;BID;SC, 5 MCG;BID;SC, 5 MCG;BID;SC, 10 MCG;BID;SC, 5 MCG;BID SC
     Route: 058
     Dates: start: 20050801, end: 20051001
  2. BYETTA [Suspect]
     Indication: DIABETES MELLITUS NON-INSULIN-DEPENDENT
     Dosage: 2.5 MCG;BID;SC, 5 MCG;BID;SC, 5 MCG;BID;SC, 10 MCG;BID;SC, 5 MCG;BID SC
     Route: 058
     Dates: start: 20051001, end: 20051001
  3. BYETTA [Suspect]
     Indication: DIABETES MELLITUS NON-INSULIN-DEPENDENT
     Dosage: 2.5 MCG;BID;SC, 5 MCG;BID;SC, 5 MCG;BID;SC, 10 MCG;BID;SC, 5 MCG;BID SC
     Route: 058
     Dates: start: 20051001, end: 20060201
  4. BYETTA [Suspect]
     Indication: DIABETES MELLITUS NON-INSULIN-DEPENDENT
     Dosage: 2.5 MCG;BID;SC, 5 MCG;BID;SC, 5 MCG;BID;SC, 10 MCG;BID;SC, 5 MCG;BID SC
     Route: 058
     Dates: start: 20070201, end: 20070101
  5. BYETTA [Suspect]
     Indication: DIABETES MELLITUS NON-INSULIN-DEPENDENT
     Dosage: 2.5 MCG;BID;SC, 5 MCG;BID;SC, 5 MCG;BID;SC, 10 MCG;BID;SC, 5 MCG;BID SC
     Route: 058
     Dates: start: 20070101

REACTIONS (5)
  - BLOOD GLUCOSE INCREASED [None]
  - DECREASED APPETITE [None]
  - NAUSEA [None]
  - VOMITING [None]
  - WEIGHT DECREASED [None]
